FAERS Safety Report 25020077 (Version 1)
Quarter: 2025Q1

REPORT INFORMATION
  Report Type: Spontaneous
  Country: US (occurrence: US)
  Receive Date: 20250227
  Receipt Date: 20250227
  Transmission Date: 20250409
  Serious: No
  Sender: DERMAVANT SCIENCES
  Company Number: US-Dermavant-001966

PATIENT
  Age: 2 Year
  Sex: Female

DRUGS (1)
  1. VTAMA [Suspect]
     Active Substance: TAPINAROF
     Indication: Eczema

REACTIONS (1)
  - Eczema [Unknown]
